FAERS Safety Report 6714119-3 (Version None)
Quarter: 2010Q2

REPORT INFORMATION
  Report Type: 
  Country: None (occurrence: None)
  Receive Date: 20100503
  Receipt Date: 20100423
  Transmission Date: 20101027
  Serious: Yes (Hospitalization)
  Sender: FDA-Public Use
  Company Number: 570175

PATIENT
  Age: 56 Year
  Sex: Female
  Weight: 90.7194 kg

DRUGS (15)
  1. AMINOPHYLLIN INJ [Suspect]
     Indication: DRUG USE FOR UNKNOWN INDICATION
     Dosage: 200 MG MILLIGRAM(S), INTRAVENOUS
     Route: 042
  2. DIPYRIDAMOLE [Suspect]
     Indication: DRUG USE FOR UNKNOWN INDICATION
     Dosage: 70 MG MILLIGRAM(S), INTRAVENEOUS
  3. ASPIRIN [Concomitant]
  4. BISOPROLOL [Concomitant]
  5. CELEXA [Concomitant]
  6. COUMADIN [Concomitant]
  7. CREATOR [Concomitant]
  8. DIOVAN [Concomitant]
  9. ELTROXIN [Concomitant]
  10. FOLATE [Concomitant]
  11. HYDROCHLOROTHIAZIDE [Concomitant]
  12. INSULIN [Concomitant]
  13. METFORMIN [Concomitant]
  14. PANTOPRAZOLE [Concomitant]
  15. PLAVIX [Concomitant]

REACTIONS (11)
  - CONDITION AGGRAVATED [None]
  - COUGH [None]
  - DISEASE PROGRESSION [None]
  - DYSPNOEA [None]
  - ERYTHEMA [None]
  - HYPOXIA [None]
  - INCREASED UPPER AIRWAY SECRETION [None]
  - OROPHARYNGEAL DISCOMFORT [None]
  - RALES [None]
  - VOMITING [None]
  - WHEEZING [None]
